FAERS Safety Report 9648757 (Version 1)
Quarter: 2013Q4

REPORT INFORMATION
  Report Type: Spontaneous
  Country: DE (occurrence: DE)
  Receive Date: 20131028
  Receipt Date: 20131028
  Transmission Date: 20140711
  Serious: Yes (Hospitalization)
  Sender: FDA-Public Use
  Company Number: DE-009507513-1310DEU009186

PATIENT
  Sex: Female

DRUGS (2)
  1. OVESTIN 0,5 MG OVULA [Suspect]
     Indication: UTERINE PROLAPSE
     Dosage: UNK
     Dates: start: 201210
  2. OVESTIN 1MG CR?ME [Suspect]
     Indication: UTERINE PROLAPSE
     Dosage: UNK
     Dates: start: 201210

REACTIONS (2)
  - Knee arthroplasty [Unknown]
  - Gamma-glutamyltransferase increased [Not Recovered/Not Resolved]
